FAERS Safety Report 7249364-4 (Version None)
Quarter: 2011Q1

REPORT INFORMATION
  Report Type: 
  Country: None (occurrence: None)
  Receive Date: 20110128
  Receipt Date: 20101124
  Transmission Date: 20110831
  Serious: Yes (Hospitalization)
  Sender: FDA-Public Use
  Company Number: US-BAYER-201016109NA

PATIENT
  Sex: Female
  Weight: 81.818 kg

DRUGS (8)
  1. YAZ [Suspect]
     Indication: PRODUCT USED FOR UNKNOWN INDICATION
     Route: 048
  2. YASMIN [Suspect]
     Indication: PRODUCT USED FOR UNKNOWN INDICATION
     Route: 048
     Dates: start: 20010901, end: 20050101
  3. EFFEXOR XR [Concomitant]
  4. YASMIN [Suspect]
     Dosage: UNK
     Dates: start: 20050101, end: 20050101
  5. PROTONIX [Concomitant]
  6. KARIVA [Concomitant]
  7. ASPIRIN [Concomitant]
     Dosage: 81 MG, UNK
  8. MICARDIS HCT [Concomitant]

REACTIONS (5)
  - PULMONARY INFARCTION [None]
  - DEEP VEIN THROMBOSIS [None]
  - PULMONARY EMBOLISM [None]
  - COR PULMONALE ACUTE [None]
  - RESPIRATORY DISORDER [None]
